FAERS Safety Report 11640618 (Version 1)
Quarter: 2015Q4

REPORT INFORMATION
  Report Type: Other
  Country: None (occurrence: CA)
  Receive Date: 20151019
  Receipt Date: 20151019
  Transmission Date: 20160304
  Serious: Yes (Hospitalization)
  Sender: FDA-Public Use
  Company Number: CA-MERCK KGAA-1043097

PATIENT

DRUGS (1)
  1. NOVOTHYROX [Suspect]
     Active Substance: LEVOTHYROXINE SODIUM

REACTIONS (2)
  - Drug interaction [None]
  - Thyrotoxic crisis [None]
